FAERS Safety Report 14919107 (Version 2)
Quarter: 2018Q2

REPORT INFORMATION
  Report Type: Report from Study
  Country: JP (occurrence: JP)
  Receive Date: 20180521
  Receipt Date: 20180620
  Transmission Date: 20180711
  Serious: Yes (Hospitalization)
  Sender: FDA-Public Use
  Company Number: JP-TEVA-627800ISR

PATIENT
  Age: 45 Year
  Sex: Female
  Weight: 63.7 kg

DRUGS (23)
  1. GLATIRAMER ACETATE INJECTION [Suspect]
     Active Substance: GLATIRAMER ACETATE
     Indication: RELAPSING-REMITTING MULTIPLE SCLEROSIS
     Dosage: 20 MILLIGRAM/MILLILITERS DAILY;
     Route: 058
     Dates: start: 20151221, end: 20160107
  2. GLATIRAMER ACETATE INJECTION [Suspect]
     Active Substance: GLATIRAMER ACETATE
     Dosage: 20 MILLIGRAM/MILLILITERS DAILY;
     Route: 058
     Dates: start: 20160201, end: 20170903
  3. GLATIRAMER ACETATE INJECTION [Suspect]
     Active Substance: GLATIRAMER ACETATE
     Dosage: 20 MILLIGRAM DAILY;
     Route: 058
     Dates: start: 20170904
  4. TRAMCET [Concomitant]
     Active Substance: ACETAMINOPHEN\TRAMADOL
     Route: 065
     Dates: end: 20161116
  5. SOLU-MEDROL [Concomitant]
     Active Substance: METHYLPREDNISOLONE SODIUM SUCCINATE
     Route: 065
     Dates: start: 20160418, end: 20160920
  6. BETANIS [Concomitant]
     Active Substance: MIRABEGRON
     Route: 065
  7. EDIROL [Concomitant]
     Active Substance: ELDECALCITOL
     Route: 065
  8. ZOLPIDEM TARTRATE. [Concomitant]
     Active Substance: ZOLPIDEM TARTRATE
     Route: 065
  9. CALONAL [Concomitant]
     Active Substance: ACETAMINOPHEN
     Route: 065
  10. RIVOTRIL [Concomitant]
     Active Substance: CLONAZEPAM
     Route: 065
  11. MAGLAX [Concomitant]
     Active Substance: MAGNESIUM OXIDE
     Route: 065
     Dates: end: 20160229
  12. TRYPTANOL [Concomitant]
     Active Substance: AMITRIPTYLINE
     Route: 065
  13. PAROXETINE. [Concomitant]
     Active Substance: PAROXETINE
     Route: 065
  14. SILECE [Concomitant]
     Active Substance: FLUNITRAZEPAM
     Route: 065
  15. AZANIN [Concomitant]
     Active Substance: AZATHIOPRINE
     Route: 065
     Dates: start: 20160920
  16. PREDONINE [Concomitant]
     Active Substance: PREDNISOLONE
     Route: 065
  17. LYRICA [Concomitant]
     Active Substance: PREGABALIN
     Route: 065
  18. DEPAKENE [Concomitant]
     Active Substance: VALPROIC ACID
     Route: 065
  19. DEPAS [Concomitant]
     Active Substance: ETIZOLAM
     Route: 065
  20. NEUROTROPIN [Concomitant]
     Active Substance: NEUROTROPIN
     Route: 065
  21. LANSOPRAZOLE. [Concomitant]
     Active Substance: LANSOPRAZOLE
     Route: 065
  22. LOXONIN [Concomitant]
     Active Substance: LOXOPROFEN SODIUM
     Route: 065
     Dates: end: 20160118
  23. SENNOSIDE A+B [Concomitant]
     Active Substance: SENNOSIDES A AND B
     Route: 065
     Dates: start: 20160601

REACTIONS (4)
  - Pyrexia [Unknown]
  - Drug prescribing error [Unknown]
  - Urinary tract infection [Unknown]
  - Hypoaesthesia [Recovering/Resolving]

NARRATIVE: CASE EVENT DATE: 20160104
